FAERS Safety Report 8977397 (Version 6)
Quarter: 2013Q4

REPORT INFORMATION
  Report Type: Spontaneous
  Country: US (occurrence: US)
  Receive Date: 20121220
  Receipt Date: 20131025
  Transmission Date: 20140711
  Serious: Yes (Hospitalization, Other)
  Sender: FDA-Public Use
  Company Number: US-009507513-1212USA007574

PATIENT
  Sex: Female
  Weight: 60.32 kg

DRUGS (11)
  1. FOSAMAX [Suspect]
     Indication: OSTEOPENIA
     Dosage: 10 MG, QW
     Route: 048
     Dates: start: 199706, end: 200010
  2. FOSAMAX [Suspect]
     Dosage: 70 MG, UNK
     Route: 048
     Dates: start: 200010
  3. ALENDRONATE SODIUM [Suspect]
     Indication: OSTEOPENIA
     Dosage: 70 MG, QW
     Route: 048
     Dates: start: 200803, end: 201012
  4. VITAMINS (UNSPECIFIED) [Concomitant]
     Dosage: ONCE DAILY
     Dates: start: 1990, end: 2012
  5. CALCIUM (UNSPECIFIED) [Concomitant]
     Indication: OSTEOPENIA
     Dosage: 600 MG, QD
     Dates: start: 1993
  6. CORTICOSTEROIDS (UNSPECIFIED) [Concomitant]
     Dosage: UNK
     Dates: start: 1980
  7. VITAMIN D (UNSPECIFIED) [Concomitant]
     Indication: OSTEOPENIA
  8. MESTINON [Concomitant]
     Indication: MYASTHENIA GRAVIS
     Dosage: 90 MG, Q4H
  9. CELLCEPT [Concomitant]
     Indication: MYASTHENIA GRAVIS
     Dosage: 2000 MG, QD
  10. PREDNISONE [Concomitant]
     Dosage: 50 ALTERNATING W 4 DAILY
     Dates: start: 1998
  11. BONIVA [Concomitant]
     Indication: OSTEOPENIA

REACTIONS (45)
  - Open reduction of fracture [Unknown]
  - Thymectomy [Unknown]
  - Intramedullary rod insertion [Unknown]
  - Mastectomy [Unknown]
  - Thymectomy [Unknown]
  - Breast cancer stage III [Unknown]
  - Femur fracture [Unknown]
  - Femur fracture [Unknown]
  - Femur fracture [Unknown]
  - Low turnover osteopathy [Unknown]
  - Radiotherapy [Unknown]
  - Chemotherapy [Unknown]
  - Adverse event [Unknown]
  - Dental caries [Unknown]
  - Tooth extraction [Unknown]
  - Foot fracture [Unknown]
  - Intervertebral disc degeneration [Unknown]
  - Breast lump removal [Unknown]
  - Lymphadenectomy [Unknown]
  - Localised infection [Unknown]
  - Rheumatoid arthritis [Unknown]
  - Fall [Unknown]
  - Rib fracture [Unknown]
  - Escherichia urinary tract infection [Unknown]
  - Osteoarthritis [Unknown]
  - Presyncope [Unknown]
  - Fall [Unknown]
  - Scoliosis [Unknown]
  - Spinal osteoarthritis [Unknown]
  - Bursitis [Unknown]
  - Radiculitis lumbosacral [Unknown]
  - Cardiomyopathy [Unknown]
  - Osteoporosis [Unknown]
  - Ejection fraction decreased [Unknown]
  - Cataract [Unknown]
  - Diverticulitis [Unknown]
  - Haemorrhoids [Unknown]
  - Cataract [Unknown]
  - Eye laser surgery [Unknown]
  - Appendicectomy [Unknown]
  - Tonsillectomy [Unknown]
  - Extraskeletal ossification [Unknown]
  - Incorrect dose administered [Unknown]
  - Back pain [Unknown]
  - Muscle spasms [Unknown]
